FAERS Safety Report 10192363 (Version 1)
Quarter: 2014Q2

REPORT INFORMATION
  Report Type: Spontaneous
  Country: KR (occurrence: KR)
  Receive Date: 20140523
  Receipt Date: 20140523
  Transmission Date: 20141212
  Serious: Yes (Hospitalization)
  Sender: FDA-Public Use
  Company Number: PHHY2014KR061410

PATIENT
  Age: 57 Year
  Sex: Male

DRUGS (1)
  1. FLUORESCEINE [Suspect]
     Dosage: UNK UKN, UNK

REACTIONS (1)
  - Cardiac arrest [Unknown]
